FAERS Safety Report 8909403 (Version 1)
Quarter: 2012Q4

REPORT INFORMATION
  Report Type: Spontaneous
  Country: GB (occurrence: None)
  Receive Date: 20121107
  Receipt Date: 20121107
  Transmission Date: 20130627
  Serious: Yes (Other)
  Sender: FDA-Public Use
  Company Number: AUR-APL-2012-04634

PATIENT
  Age: 37 Year
  Sex: Female
  Weight: 72 kg

DRUGS (3)
  1. SERTRALINE [Suspect]
     Indication: ANXIETY
     Route: 048
     Dates: start: 20120215, end: 20121010
  2. SERETIDE (SERETIDE /01420901/) [Concomitant]
  3. VITAMIN D (ERGOCALCIFEROL) [Concomitant]

REACTIONS (7)
  - Dyspepsia [None]
  - Anxiety [None]
  - Depression [None]
  - Diarrhoea [None]
  - Gastric disorder [None]
  - Headache [None]
  - Product substitution issue [None]
